FAERS Safety Report 23099940 (Version 2)
Quarter: 2024Q1

REPORT INFORMATION
  Report Type: Spontaneous
  Country: US (occurrence: US)
  Receive Date: 20231024
  Receipt Date: 20240104
  Transmission Date: 20240410
  Serious: No
  Sender: FDA-Public Use
  Company Number: US-ALXN-A202313945

PATIENT
  Sex: Female

DRUGS (1)
  1. SOLIRIS [Suspect]
     Active Substance: ECULIZUMAB
     Indication: Myasthenia gravis
     Dosage: UNK, Q2W
     Route: 042
     Dates: start: 202205

REACTIONS (4)
  - Myalgia [Recovered/Resolved]
  - Bone pain [Recovered/Resolved]
  - Headache [Recovered/Resolved]
  - Arthralgia [Recovered/Resolved]
